FAERS Safety Report 16529364 (Version 1)
Quarter: 2019Q3

REPORT INFORMATION
  Report Type: Spontaneous
  Country: US (occurrence: US)
  Receive Date: 20190704
  Receipt Date: 20190704
  Transmission Date: 20191004
  Serious: No
  Sender: FDA-Public Use
  Company Number: US-GW PHARMA-201904USGW1174

PATIENT

DRUGS (12)
  1. DEPAKOTE [Concomitant]
     Active Substance: DIVALPROEX SODIUM
     Indication: PRODUCT USED FOR UNKNOWN INDICATION
     Dosage: 500 MG, BID
     Route: 048
  2. ONFI [Concomitant]
     Active Substance: CLOBAZAM
     Indication: PRODUCT USED FOR UNKNOWN INDICATION
     Dosage: 10 MG, QD (1 TABLET NIGHTLY AT BEDTIME)
     Route: 048
  3. FOLIC ACID. [Suspect]
     Active Substance: FOLIC ACID
     Indication: PRODUCT USED FOR UNKNOWN INDICATION
     Dosage: UNK
     Route: 065
  4. XANAX [Concomitant]
     Active Substance: ALPRAZOLAM
     Indication: ANXIETY
  5. ACETAMINOPHEN;BUTALBITAL;CAFFEINE;CODEINE P [Concomitant]
     Indication: HEADACHE
     Dosage: 1 TABLET EVERY 4 TO 6 HOURS AS NEEDED 325MG-50MG-40MG
     Route: 048
  6. EPIDIOLEX [Suspect]
     Active Substance: CANNABIDIOL
     Indication: IDIOPATHIC GENERALISED EPILEPSY
     Dosage: 210 MILLIGRAM, BID
     Route: 048
     Dates: start: 20190221
  7. ETHOSUXIMIDE. [Concomitant]
     Active Substance: ETHOSUXIMIDE
     Indication: PRODUCT USED FOR UNKNOWN INDICATION
     Dosage: 250 MG, BID (2 CAPSULES)
     Route: 048
  8. XANAX [Concomitant]
     Active Substance: ALPRAZOLAM
     Indication: DEPRESSION
     Dosage: 0.25 MG, BID
     Route: 048
  9. EPIDIOLEX [Suspect]
     Active Substance: CANNABIDIOL
     Dosage: DOSE INCREASED
     Route: 048
     Dates: start: 2019, end: 2019
  10. VITAMIN D3 [Concomitant]
     Active Substance: CHOLECALCIFEROL
     Indication: PRODUCT USED FOR UNKNOWN INDICATION
     Dosage: 2000 U, QD (1CAPSULE)
     Route: 048
  11. EPIDIOLEX [Suspect]
     Active Substance: CANNABIDIOL
     Dosage: 460 MG, BID
     Route: 048
     Dates: start: 2019
  12. EPIDIOLEX [Suspect]
     Active Substance: CANNABIDIOL
     Dosage: 210 MILLIGRAM, BID
     Route: 048
     Dates: start: 20190221, end: 2019

REACTIONS (3)
  - Seizure [Not Recovered/Not Resolved]
  - Off label use [Unknown]
  - Diarrhoea [Not Recovered/Not Resolved]

NARRATIVE: CASE EVENT DATE: 2019
